FAERS Safety Report 4861577-5 (Version None)
Quarter: 2005Q4

REPORT INFORMATION
  Report Type: 
  Country: None (occurrence: None)
  Receive Date: 20051220
  Receipt Date: 20051209
  Transmission Date: 20060501
  Serious: Yes (Other)
  Sender: FDA-Public Use
  Company Number: CA-BRISTOL-MYERS SQUIBB COMPANY-13218599

PATIENT
  Age: 84 Year
  Sex: Male

DRUGS (13)
  1. TEQUIN [Suspect]
     Route: 048
  2. BENZTROPINE MESYLATE [Concomitant]
  3. DOCUSATE [Concomitant]
  4. ENALAPRIL [Concomitant]
  5. EXELON [Concomitant]
  6. GABAPENTIN [Concomitant]
  7. GLYBURIDE [Concomitant]
  8. HYDROCHLOROTHIAZIDE [Concomitant]
  9. LORAZEPAM [Concomitant]
  10. METFORMIN HCL [Concomitant]
  11. QUETIAPINE FUMARATE [Concomitant]
  12. RISPERIDONE [Concomitant]
  13. TIMOLOL MALEATE [Concomitant]

REACTIONS (1)
  - HYPOGLYCAEMIA [None]
